FAERS Safety Report 12676106 (Version 1)
Quarter: 2016Q3

REPORT INFORMATION
  Report Type: Spontaneous
  Country: US (occurrence: None)
  Receive Date: 20160822
  Receipt Date: 20160822
  Transmission Date: 20161109
  Serious: Yes (Disabling)
  Sender: FDA-Public Use
  Company Number: None

PATIENT
  Sex: Female
  Weight: 72.58 kg

DRUGS (5)
  1. CLONAPIN [Concomitant]
     Active Substance: CLONAZEPAM
  2. VRAYLAR [Suspect]
     Active Substance: CARIPRAZINE
     Indication: BIPOLAR DISORDER
     Route: 048
     Dates: start: 20160616
  3. ADDERAL XR [Concomitant]
  4. GABAPENTIN. [Concomitant]
     Active Substance: GABAPENTIN
  5. CLONADINE [Concomitant]

REACTIONS (1)
  - Withdrawal syndrome [None]

NARRATIVE: CASE EVENT DATE: 20160819
